FAERS Safety Report 23467472 (Version 1)
Quarter: 2024Q1

REPORT INFORMATION
  Report Type: Spontaneous
  Country: US (occurrence: US)
  Receive Date: 20240201
  Receipt Date: 20240201
  Transmission Date: 20240410
  Serious: Yes (Hospitalization)
  Sender: FDA-Public Use
  Company Number: US-Calliditas-2024CAL00112

PATIENT
  Age: 67 Year
  Sex: Male

DRUGS (1)
  1. TARPEYO [Suspect]
     Active Substance: BUDESONIDE
     Indication: IgA nephropathy
     Route: 048
     Dates: start: 20230908

REACTIONS (8)
  - Pneumonia [Unknown]
  - Blood potassium decreased [Unknown]
  - Nasopharyngitis [Unknown]
  - Pyrexia [Unknown]
  - Haemoglobin decreased [Unknown]
  - Fatigue [Unknown]
  - Therapy interrupted [Unknown]
  - Abdominal discomfort [Unknown]

NARRATIVE: CASE EVENT DATE: 20231201
